FAERS Safety Report 18614824 (Version 31)
Quarter: 2025Q3

REPORT INFORMATION
  Report Type: Report from Study
  Country: US (occurrence: US)
  Receive Date: 20201214
  Receipt Date: 20250714
  Transmission Date: 20251021
  Serious: Yes (Hospitalization, Other)
  Sender: TAKEDA
  Company Number: US-TAKEDA-2020TUS056425

PATIENT
  Age: 53 Year
  Sex: Female
  Weight: 75 kg

DRUGS (20)
  1. HUMAN IMMUNOGLOBULIN G [Suspect]
     Active Substance: HUMAN IMMUNOGLOBULIN G
     Indication: Immunodeficiency common variable
     Dosage: 10 GRAM, 1/WEEK
     Dates: start: 20200617
  2. ACETAMINOPHEN [Concomitant]
     Active Substance: ACETAMINOPHEN
  3. Artificial tears [Concomitant]
  4. TUMS [Concomitant]
     Active Substance: CALCIUM CARBONATE
  5. AZELASTINE HYDROCHLORIDE [Concomitant]
     Active Substance: AZELASTINE HYDROCHLORIDE
  6. ALBUTEROL SULFATE [Concomitant]
     Active Substance: ALBUTEROL SULFATE
  7. INCRUSE ELLIPTA [Concomitant]
     Active Substance: UMECLIDINIUM BROMIDE
  8. BUPROPION [Concomitant]
     Active Substance: BUPROPION
  9. LIDOCAINE [Concomitant]
     Active Substance: LIDOCAINE
  10. MELATONIN [Concomitant]
     Active Substance: MELATONIN
  11. LEVOFLOXACIN [Concomitant]
     Active Substance: LEVOFLOXACIN
  12. MONTELUKAST SODIUM [Concomitant]
     Active Substance: MONTELUKAST SODIUM
  13. DIPHENHYDRAMINE [Concomitant]
     Active Substance: DIPHENHYDRAMINE
  14. FEXOFENADINE HYDROCHLORIDE [Concomitant]
     Active Substance: FEXOFENADINE HYDROCHLORIDE
  15. CETIRIZINE HCL [Concomitant]
     Active Substance: CETIRIZINE HYDROCHLORIDE
  16. SYMBICORT [Concomitant]
     Active Substance: BUDESONIDE\FORMOTEROL FUMARATE DIHYDRATE
  17. EPINEPHRINE [Concomitant]
     Active Substance: EPINEPHRINE
  18. ALBUTEROL [Concomitant]
     Active Substance: ALBUTEROL
  19. Lmx [Concomitant]
  20. DIPHENHYDRAMINE HYDROCHLORIDE [Concomitant]
     Active Substance: DIPHENHYDRAMINE HYDROCHLORIDE

REACTIONS (27)
  - Guillain-Barre syndrome [Unknown]
  - Rib fracture [Unknown]
  - Cataract [Unknown]
  - Pneumonia [Unknown]
  - Loss of consciousness [Unknown]
  - Cardiac arrest [Unknown]
  - Multiple allergies [Unknown]
  - Foot fracture [Unknown]
  - Wheelchair user [Unknown]
  - Fall [Unknown]
  - Secretion discharge [Unknown]
  - Weight fluctuation [Unknown]
  - Seasonal allergy [Unknown]
  - Lung disorder [Unknown]
  - Dust allergy [Unknown]
  - Corneal disorder [Unknown]
  - Bronchitis [Unknown]
  - Corneal oedema [Unknown]
  - Infection [Unknown]
  - COVID-19 [Unknown]
  - Gastroenteritis viral [Unknown]
  - Inappropriate schedule of product administration [Unknown]
  - Influenza [Unknown]
  - Eye swelling [Unknown]
  - Pyrexia [Unknown]
  - Malaise [Unknown]
  - Pain [Unknown]

NARRATIVE: CASE EVENT DATE: 20221201
